FAERS Safety Report 7779078-3 (Version None)
Quarter: 2011Q3

REPORT INFORMATION
  Report Type: 
  Country: None (occurrence: None)
  Receive Date: 20110926
  Receipt Date: 20110917
  Transmission Date: 20111222
  Serious: Yes (Other)
  Sender: FDA-Public Use
  Company Number: US-US-EMD SERONO, INC.-7084526

PATIENT
  Sex: Male

DRUGS (2)
  1. SAIZEN [Suspect]
     Dates: start: 20110801
  2. SAIZEN [Suspect]
     Indication: GROWTH HORMONE DEFICIENCY
     Dates: start: 20100303, end: 20110701

REACTIONS (1)
  - MACROGENIA [None]
